FAERS Safety Report 22317043 (Version 1)
Quarter: 2023Q2

REPORT INFORMATION
  Report Type: Report from Study
  Country: CA (occurrence: CA)
  Receive Date: 20230514
  Receipt Date: 20230514
  Transmission Date: 20230722
  Serious: Yes (Other)
  Sender: FDA-Public Use
  Company Number: CA-BAUSCH-BL-2022-027945

PATIENT
  Age: 45 Year
  Sex: Female
  Weight: 88 kg

DRUGS (6)
  1. CONTRAVE [Suspect]
     Active Substance: BUPROPION HYDROCHLORIDE\NALTREXONE HYDROCHLORIDE
     Indication: Weight control
     Dosage: 90/8 MG, 1 TAB/DAY (FIRST ATTEMPT)
     Route: 048
     Dates: start: 20221214, end: 20221217
  2. CONTRAVE [Suspect]
     Active Substance: BUPROPION HYDROCHLORIDE\NALTREXONE HYDROCHLORIDE
     Dosage: 90/8 MG, 1 TAB/DAY (SECOND ATTEMPT)
     Route: 048
     Dates: start: 20221219, end: 2023
  3. CONTRAVE [Suspect]
     Active Substance: BUPROPION HYDROCHLORIDE\NALTREXONE HYDROCHLORIDE
     Dosage: 90/8 MG, 2 TAB Q AM, 2 TAB Q PM(SECOND ATTEMPT)
     Route: 048
     Dates: start: 20230109, end: 20230414
  4. CONTRAVE [Suspect]
     Active Substance: BUPROPION HYDROCHLORIDE\NALTREXONE HYDROCHLORIDE
     Dosage: 90/8 MG, 2 TAB Q AM, 1 TAB Q PM (SECOND ATTEMPT)
     Route: 048
     Dates: start: 20230415
  5. VITAMIN D NOS [Concomitant]
     Active Substance: VITAMIN D NOS
     Indication: Vitamin supplementation
     Dosage: VITAMIN D, OD (1 IN 1 D)
     Route: 048
  6. IRON [Concomitant]
     Active Substance: IRON
     Indication: Mineral supplementation
     Dosage: OD (1 IN 1 D)
     Route: 048

REACTIONS (12)
  - Deafness [Not Recovered/Not Resolved]
  - Amenorrhoea [Not Recovered/Not Resolved]
  - Food craving [Unknown]
  - Energy increased [Not Recovered/Not Resolved]
  - Nausea [Recovered/Resolved]
  - Headache [Recovered/Resolved]
  - Tinnitus [Not Recovered/Not Resolved]
  - Memory impairment [Recovering/Resolving]
  - Therapy interrupted [Unknown]
  - Labelled drug-food interaction issue [Unknown]
  - Intentional dose omission [Unknown]
  - Patient dissatisfaction with treatment [Unknown]

NARRATIVE: CASE EVENT DATE: 20221214
